FAERS Safety Report 9005625 (Version 1)
Quarter: 2013Q1

REPORT INFORMATION
  Report Type: Spontaneous
  Country: US (occurrence: US)
  Receive Date: 20130109
  Receipt Date: 20130109
  Transmission Date: 20140127
  Serious: Yes (Disabling)
  Sender: FDA-Public Use
  Company Number: US-009507513-1301USA003018

PATIENT
  Sex: 0

DRUGS (1)
  1. MK-0966 [Suspect]
     Route: 048

REACTIONS (1)
  - Urticaria [Unknown]
